FAERS Safety Report 19712659 (Version 2)
Quarter: 2021Q3

REPORT INFORMATION
  Report Type: Spontaneous
  Country: US (occurrence: US)
  Receive Date: 20210817
  Receipt Date: 20210901
  Transmission Date: 20211014
  Serious: Yes (Hospitalization)
  Sender: FDA-Public Use
  Company Number: 2020SGN03749

PATIENT
  Age: 62 Year
  Sex: Female

DRUGS (3)
  1. TUKYSA [Suspect]
     Active Substance: TUCATINIB
     Indication: BREAST CANCER FEMALE
  2. TUKYSA [Suspect]
     Active Substance: TUCATINIB
     Dosage: UNK
  3. TUKYSA [Suspect]
     Active Substance: TUCATINIB
     Indication: HER2 POSITIVE BREAST CANCER
     Dosage: UNK

REACTIONS (10)
  - Central venous catheterisation [Unknown]
  - Balance disorder [Unknown]
  - Fatigue [Unknown]
  - Erythema [Unknown]
  - Nervous system disorder [Unknown]
  - Skin fissures [Unknown]
  - Diarrhoea [Unknown]
  - Pain in extremity [Unknown]
  - Fingerprint loss [Unknown]
  - Peripheral swelling [Unknown]

NARRATIVE: CASE EVENT DATE: 20210811
